FAERS Safety Report 13169024 (Version 1)
Quarter: 2017Q1

REPORT INFORMATION
  Report Type: Spontaneous
  Country: US (occurrence: US)
  Receive Date: 20170131
  Receipt Date: 20170131
  Transmission Date: 20170428
  Serious: No
  Sender: FDA-Public Use
  Company Number: US-ABBVIE-16K-163-1546568-00

PATIENT
  Sex: Male

DRUGS (2)
  1. HUMIRA [Suspect]
     Active Substance: ADALIMUMAB
     Indication: HIDRADENITIS
     Route: 058
  2. CEFUROXIME. [Concomitant]
     Active Substance: CEFUROXIME
     Indication: DEPRESSION

REACTIONS (2)
  - Mood altered [Unknown]
  - Drug ineffective [Recovering/Resolving]
